FAERS Safety Report 8065699-X (Version None)
Quarter: 2012Q1

REPORT INFORMATION
  Report Type: 
  Country: None (occurrence: None)
  Receive Date: 20120117
  Receipt Date: 20120111
  Transmission Date: 20120608
  Serious: Yes (Death)
  Sender: FDA-Public Use
  Company Number: 2012MA000523

PATIENT
  Age: 81 Year
  Sex: Female

DRUGS (11)
  1. DULOXETIME HYDROCHLORIDE [Concomitant]
  2. MS CONTIN [Concomitant]
  3. CAPTOPRIL [Concomitant]
  4. ACETAMINOPHEN [Concomitant]
  5. GLICLAZIDE [Concomitant]
  6. FUROSEMIDE [Concomitant]
  7. LANSOPRAZOLE [Concomitant]
  8. ALLOPURINOL [Concomitant]
  9. METFORMIN HYDROCHLORIDE [Suspect]
     Indication: TYPE 2 DIABETES MELLITUS
     Dosage: 850 MG;TID;PO
     Route: 048
  10. SIMVASTATIN [Concomitant]
  11. LEVOTHYROXINE SODIUM [Concomitant]

REACTIONS (6)
  - RENAL FAILURE ACUTE [None]
  - CONTINUOUS HAEMODIAFILTRATION [None]
  - METABOLIC ACIDOSIS [None]
  - DEHYDRATION [None]
  - ABDOMINAL DISCOMFORT [None]
  - LACTIC ACIDOSIS [None]
